FAERS Safety Report 4718058-9 (Version None)
Quarter: 2005Q3

REPORT INFORMATION
  Report Type: 
  Country: None (occurrence: None)
  Receive Date: 20050718
  Receipt Date: 20050408
  Transmission Date: 20060218
  Serious: No
  Sender: FDA-Public Use
  Company Number: 2005000700

PATIENT
  Age: 74 Year
  Sex: Female
  Weight: 66.2252 kg

DRUGS (4)
  1. TARCEVA [Suspect]
     Indication: NON-SMALL CELL LUNG CANCER
     Dosage: SEE IMAGE
     Route: 048
     Dates: start: 20050101, end: 20050131
  2. . [Concomitant]
  3. LIBRIUM [Concomitant]
  4. ACIPHEX [Concomitant]

REACTIONS (5)
  - BRONCHITIS [None]
  - DIARRHOEA [None]
  - NAUSEA [None]
  - PALMAR ERYTHEMA [None]
  - URINARY TRACT INFECTION [None]
